FAERS Safety Report 8172964-4 (Version None)
Quarter: 2012Q1

REPORT INFORMATION
  Report Type: 
  Country: None (occurrence: None)
  Receive Date: 20120229
  Receipt Date: 20120222
  Transmission Date: 20120608
  Serious: Yes (Hospitalization)
  Sender: FDA-Public Use
  Company Number: US-BAYER-201017609NA

PATIENT
  Age: 16 Year
  Sex: Female
  Weight: 95.238 kg

DRUGS (15)
  1. SINGULAIR [Concomitant]
     Indication: ASTHMA
     Dosage: UNK
     Dates: start: 19910101
  2. PROTONIX [Concomitant]
     Indication: GASTROOESOPHAGEAL REFLUX DISEASE
     Dosage: UNK
     Dates: start: 20060910, end: 20061010
  3. PROPOXYPHENE NAPSYLATE [Concomitant]
     Dosage: UNK
     Dates: start: 20060910
  4. ALBUTEROL [Concomitant]
     Indication: ASTHMA
     Dosage: UNK
     Dates: start: 19910101
  5. FLONASE [Concomitant]
     Indication: ASTHMA
     Dosage: UNK
     Dates: start: 20070201
  6. DICYCLOMINE [Concomitant]
     Dosage: UNK
     Dates: start: 20060828
  7. VICODIN [Concomitant]
  8. PHENERGAN [Concomitant]
  9. YASMIN [Suspect]
     Indication: MENSTRUAL CYCLE MANAGEMENT
     Dosage: UNK
     Dates: start: 20050501, end: 20071101
  10. FLUCONAZOLE [Concomitant]
     Dosage: UNK
     Dates: start: 20060524, end: 20060623
  11. ADVAIR DISKUS 100/50 [Concomitant]
     Indication: ASTHMA
     Dosage: UNK
     Dates: start: 20050101
  12. ADVAIR DISKUS 100/50 [Concomitant]
     Dosage: UNK
     Dates: start: 19910101
  13. YASMIN [Suspect]
     Indication: CONTRACEPTION
     Dosage: UNK
     Route: 048
     Dates: start: 20050201, end: 20071101
  14. VALTREX [Concomitant]
     Dosage: UNK
     Dates: start: 20060517, end: 20061121
  15. DESOGEN [Concomitant]
     Dosage: UNK
     Dates: start: 20080401

REACTIONS (8)
  - PAIN [None]
  - DEPRESSION [None]
  - CHOLECYSTECTOMY [None]
  - CHOLELITHIASIS [None]
  - HAEMOBILIA [None]
  - SCAR [None]
  - CHOLECYSTITIS ACUTE [None]
  - ANXIETY [None]
